FAERS Safety Report 8880948 (Version 2)
Quarter: 2012Q4

REPORT INFORMATION
  Report Type: 
  Country: BR (occurrence: BR)
  Receive Date: 20121101
  Receipt Date: 20121107
  Transmission Date: 20130627
  Serious: Yes (Death)
  Sender: FDA-Public Use
  Company Number: BR-B.I. PHARMACEUTICALS,INC./RIDGEFIELD-2012-BR-01249BR

PATIENT
  Age: 89 Year
  Sex: Male

DRUGS (1)
  1. SECOTEX ADV [Suspect]
     Indication: DYSURIA
     Dosage: 0.4 mg
     Route: 048

REACTIONS (3)
  - Prostate cancer [Fatal]
  - Metastases to bone [Fatal]
  - Cardiac arrest [Fatal]
